FAERS Safety Report 6867387-1 (Version None)
Quarter: 2010Q3

REPORT INFORMATION
  Report Type: 
  Country: None (occurrence: None)
  Receive Date: 20100722
  Receipt Date: 20100719
  Transmission Date: 20110219
  Serious: Yes (Other)
  Sender: FDA-Public Use
  Company Number: FR-BRISTOL-MYERS SQUIBB COMPANY-14828198

PATIENT
  Age: 31 Year
  Sex: Female
  Weight: 72 kg

DRUGS (2)
  1. ABILIFY [Suspect]
     Indication: SCHIZOPHRENIA
     Route: 048
     Dates: start: 20051101, end: 20091001
  2. HEPTAMYL [Suspect]
     Dosage: DF=3 TABS
     Route: 048
     Dates: start: 20090401

REACTIONS (2)
  - ABORTION SPONTANEOUS [None]
  - PREGNANCY [None]
